FAERS Safety Report 4294398-5 (Version None)
Quarter: 2004Q1

REPORT INFORMATION
  Report Type: 
  Country: None (occurrence: None)
  Receive Date: 20040211
  Receipt Date: 20040202
  Transmission Date: 20041129
  Serious: No
  Sender: FDA-Public Use
  Company Number: 2003189887FR

PATIENT
  Age: 73 Year
  Sex: Female

DRUGS (5)
  1. CELEBREX [Suspect]
     Indication: ARTHRITIS
     Dosage: PRN, ORAL
     Route: 048
  2. DISULFIRAM [Suspect]
     Indication: ALCOHOLISM
     Dosage: 400 MG, QD, ORAL
     Route: 048
  3. SEROPRAM (CITALOPRAM HYDROBROMIDE) [Suspect]
     Indication: DEPRESSION
     Dosage: 20 MG, QD, ORAL
     Route: 048
  4. BENERVA [Concomitant]
  5. PARACETAMOL [Concomitant]

REACTIONS (15)
  - APATHY [None]
  - AREFLEXIA [None]
  - ASTHENIA [None]
  - ATAXIA [None]
  - CONFUSIONAL STATE [None]
  - DIFFICULTY IN WALKING [None]
  - DRUG INTERACTION [None]
  - DRUG TOXICITY [None]
  - ENCEPHALOPATHY [None]
  - FALL [None]
  - MEMORY IMPAIRMENT [None]
  - MENTAL IMPAIRMENT [None]
  - PARAESTHESIA [None]
  - PARAESTHESIA ORAL [None]
  - POLYNEUROPATHY [None]
